FAERS Safety Report 4536716-6 (Version None)
Quarter: 2004Q4

REPORT INFORMATION
  Report Type: 
  Country: None (occurrence: None)
  Receive Date: 20041223
  Receipt Date: 20040123
  Transmission Date: 20050328
  Serious: Yes (Hospitalization)
  Sender: FDA-Public Use
  Company Number: 200410193JP

PATIENT
  Age: 71 Year
  Sex: Female
  Weight: 52 kg

DRUGS (8)
  1. ARAVA [Suspect]
     Indication: RHEUMATOID ARTHRITIS
     Route: 048
     Dates: start: 20031205, end: 20040120
  2. SHIOSOL [Concomitant]
     Indication: RHEUMATOID ARTHRITIS
     Route: 030
     Dates: start: 20031106
  3. PREDNISOLONE [Concomitant]
     Indication: INTERSTITIAL LUNG DISEASE
     Route: 048
     Dates: start: 20030430
  4. RIDAURA [Concomitant]
     Indication: RHEUMATOID ARTHRITIS
     Route: 048
     Dates: start: 19970601, end: 20040120
  5. GLIMICRON [Concomitant]
     Indication: DIABETES MELLITUS
     Route: 048
     Dates: start: 19970908
  6. ARTIST [Concomitant]
     Indication: HYPERTENSION
     Route: 048
     Dates: start: 20030310
  7. ACINON [Concomitant]
     Indication: GASTRITIS EROSIVE
     Route: 048
     Dates: start: 20030909
  8. GASTROM [Concomitant]
     Indication: GASTRITIS EROSIVE
     Route: 048
     Dates: start: 20030909

REACTIONS (20)
  - ALANINE AMINOTRANSFERASE INCREASED [None]
  - ANOREXIA [None]
  - ASPARTATE AMINOTRANSFERASE INCREASED [None]
  - BLOOD ALKALINE PHOSPHATASE INCREASED [None]
  - BLOOD CREATININE INCREASED [None]
  - BLOOD UREA INCREASED [None]
  - C-REACTIVE PROTEIN INCREASED [None]
  - DECREASED APPETITE [None]
  - DIARRHOEA [None]
  - GAMMA-GLUTAMYLTRANSFERASE INCREASED [None]
  - GLUCOSE URINE PRESENT [None]
  - HERPES SIMPLEX [None]
  - LIVER DISORDER [None]
  - PLATELET COUNT DECREASED [None]
  - PROTEIN URINE PRESENT [None]
  - PYREXIA [None]
  - RED BLOOD CELL SEDIMENTATION RATE INCREASED [None]
  - RENAL DISORDER [None]
  - URINARY OCCULT BLOOD POSITIVE [None]
  - WHITE BLOOD CELL COUNT INCREASED [None]
